FAERS Safety Report 8836464 (Version 2)
Quarter: 2012Q4

REPORT INFORMATION
  Report Type: 
  Country: JP (occurrence: JP)
  Receive Date: 20121011
  Receipt Date: 20121102
  Transmission Date: 20130627
  Serious: Yes (Hospitalization)
  Sender: FDA-Public Use
  Company Number: JP-B.I. PHARMACEUTICALS,INC./RIDGEFIELD-2012-EU-05122GD

PATIENT
  Age: 87 Year
  Sex: Male
  Weight: 44.5 kg

DRUGS (4)
  1. PRADAXA [Suspect]
     Indication: THROMBOSIS PROPHYLAXIS
     Dosage: 220 mg
     Route: 048
     Dates: start: 20110729, end: 20110804
  2. SODIUM RABEPRAZOLE [Concomitant]
     Indication: HAEMORRHAGE PROPHYLAXIS
     Dosage: 10 mg
     Route: 048
     Dates: start: 20110729
  3. REPTOR [Concomitant]
     Indication: HEPATIC FUNCTION ABNORMAL
     Dosage: 600 mg
     Route: 048
     Dates: start: 20110729
  4. URIEF [Concomitant]
     Indication: POLLAKIURIA
     Dosage: 8 mg
     Route: 048
     Dates: start: 20110802

REACTIONS (1)
  - Cerebral infarction [Recovered/Resolved with Sequelae]
